FAERS Safety Report 10251283 (Version 1)
Quarter: 2014Q2

REPORT INFORMATION
  Report Type: Spontaneous
  Country: US (occurrence: US)
  Receive Date: 20140621
  Receipt Date: 20140621
  Transmission Date: 20141212
  Serious: Yes (Other)
  Sender: FDA-Public Use
  Company Number: US-ABBVIE-14P-163-1244853-00

PATIENT
  Age: 71 Year
  Sex: Female
  Weight: 49.94 kg

DRUGS (1)
  1. LOWTIYEL [Suspect]
     Indication: PRODUCT USED FOR UNKNOWN INDICATION
     Dates: start: 19960626

REACTIONS (10)
  - Arthritis [Unknown]
  - Blindness [Unknown]
  - Deafness [Unknown]
  - Osteoporosis [Unknown]
  - Tooth loss [Not Recovered/Not Resolved]
  - Product quality issue [Unknown]
  - Skin lesion [Unknown]
  - Headache [Unknown]
  - Blood pH increased [Unknown]
  - Arthropathy [None]
